FAERS Safety Report 17849461 (Version 1)
Quarter: 2020Q2

REPORT INFORMATION
  Report Type: Spontaneous
  Country: US (occurrence: US)
  Receive Date: 20200602
  Receipt Date: 20200602
  Transmission Date: 20200714
  Serious: No
  Sender: FDA-Public Use
  Company Number: US-MYLANLABS-2020M1052678

PATIENT
  Sex: Female
  Weight: 59 kg

DRUGS (1)
  1. GLATIRAMER ACETATE INJECTION [Suspect]
     Active Substance: GLATIRAMER ACETATE
     Indication: MULTIPLE SCLEROSIS
     Dosage: 40 MILLIGRAM, 3XW (THREE TIMES WEEKLY)
     Route: 058
     Dates: start: 202004

REACTIONS (1)
  - Wrong device used [Not Recovered/Not Resolved]

NARRATIVE: CASE EVENT DATE: 2020
